FAERS Safety Report 8516029-8 (Version None)
Quarter: 2012Q3

REPORT INFORMATION
  Report Type: 
  Country: None (occurrence: None)
  Receive Date: 20120717
  Receipt Date: 20120403
  Transmission Date: 20120928
  Serious: No
  Sender: FDA-Public Use
  Company Number: US-NOVEN-12US004423

PATIENT
  Age: 50 Year
  Sex: Female

DRUGS (5)
  1. RESTORIL [Concomitant]
     Indication: INSOMNIA
     Dosage: 2 CAPS @ HS
     Route: 048
  2. CYMBALTA [Concomitant]
     Indication: DEPRESSION
     Dosage: 60 MG, BID
     Route: 048
  3. PROZAC [Concomitant]
     Indication: DEPRESSION
     Dosage: 20 MG, MORNING
     Route: 048
  4. FENTANYL [Suspect]
     Indication: FIBROMYALGIA
     Dosage: 100 UG/HR EVERY 72 HRS
     Route: 062
     Dates: start: 20120101
  5. NORVASC [Concomitant]
     Indication: RAYNAUD'S PHENOMENON

REACTIONS (7)
  - FATIGUE [None]
  - HYPERHIDROSIS [None]
  - DRUG ADMINISTRATION ERROR [None]
  - HOT FLUSH [None]
  - PRODUCT QUALITY ISSUE [None]
  - FIBROMYALGIA [None]
  - INSOMNIA [None]
